FAERS Safety Report 7511308-5 (Version None)
Quarter: 2011Q2

REPORT INFORMATION
  Report Type: 
  Country: None (occurrence: None)
  Receive Date: 20110531
  Receipt Date: 20110318
  Transmission Date: 20111010
  Serious: Yes (Other)
  Sender: FDA-Public Use
  Company Number: US-BAYER-201036214NA

PATIENT
  Age: 29 Year
  Sex: Female

DRUGS (7)
  1. YASMIN [Suspect]
     Indication: PRODUCT USED FOR UNKNOWN INDICATION
     Dates: start: 20060101
  2. VERAPAMIL [Concomitant]
     Dosage: 120 MG, QD
  3. IMITREX [Concomitant]
     Dosage: 100 MG, UNK
     Route: 048
  4. YAZ [Suspect]
     Indication: CONTRACEPTION
     Dates: start: 20060101
  5. UNISOM [Concomitant]
  6. PREVACID [Concomitant]
     Dosage: 15 MG, UNK
     Route: 048
  7. TREXIMET [Concomitant]
     Dosage: 25 MG/HOUR OF SLEEP

REACTIONS (1)
  - GALLBLADDER DISORDER [None]
